FAERS Safety Report 16639557 (Version 1)
Quarter: 2019Q3

REPORT INFORMATION
  Report Type: Report from Study
  Country: JP (occurrence: JP)
  Receive Date: 20190726
  Receipt Date: 20190726
  Transmission Date: 20191004
  Serious: Yes (Hospitalization, Other)
  Sender: FDA-Public Use
  Company Number: PHHO2012JP020258

PATIENT
  Age: 64 Year
  Sex: Male

DRUGS (5)
  1. PEGINTERFERON ALFA-2A RECOMBINANT [Suspect]
     Active Substance: PEGINTERFERON ALFA-2A
     Dosage: 40 MG, QW
     Route: 058
     Dates: start: 20121009, end: 20121009
  2. PEGINTERFERON ALFA-2A RECOMBINANT [Suspect]
     Active Substance: PEGINTERFERON ALFA-2A
     Dosage: 80 MG, QW
     Route: 058
     Dates: start: 20121017, end: 20121017
  3. PEGINTERFERON ALFA-2A RECOMBINANT [Suspect]
     Active Substance: PEGINTERFERON ALFA-2A
     Indication: PRODUCT USED FOR UNKNOWN INDICATION
     Dosage: 80 MG, QW
     Route: 058
     Dates: start: 20120912, end: 20121003
  4. REBETOL [Suspect]
     Active Substance: RIBAVIRIN
     Indication: PRODUCT USED FOR UNKNOWN INDICATION
     Dosage: 300 MG, BID
     Route: 048
     Dates: start: 20120912, end: 20121024
  5. REVOLADE TAB [Suspect]
     Active Substance: ELTROMBOPAG
     Indication: CHRONIC HEPATITIS C
     Dosage: 12.5 MG, QD
     Route: 048
     Dates: start: 20120829, end: 20121024

REACTIONS (3)
  - Hepatocellular carcinoma [Recovered/Resolved]
  - Liver injury [Recovered/Resolved]
  - Thrombocytosis [Recovered/Resolved]

NARRATIVE: CASE EVENT DATE: 20121024
